FAERS Safety Report 11106480 (Version 1)
Quarter: 2015Q2

REPORT INFORMATION
  Report Type: Spontaneous
  Country: US (occurrence: None)
  Receive Date: 20150511
  Receipt Date: 20150511
  Transmission Date: 20150821
  Serious: Yes (Life-Threatening, Hospitalization, Disabling, Other)
  Sender: FDA-Public Use
  Company Number: None

PATIENT
  Age: 23 Year
  Sex: Female
  Weight: 59.88 kg

DRUGS (7)
  1. WOMEN^S MULTIVITAMIN [Concomitant]
  2. NUVARING [Suspect]
     Active Substance: ETHINYL ESTRADIOL\ETONOGESTREL
     Indication: DYSMENORRHOEA
     Dosage: 1 RING/MONTH INSERT FOR 21 DAYS
     Route: 067
  3. HAIR, SKIN, AND NAILS [Concomitant]
  4. XARELTO [Concomitant]
     Active Substance: RIVAROXABAN
  5. FISH OIL [Concomitant]
     Active Substance: FISH OIL
  6. NUVARING [Suspect]
     Active Substance: ETHINYL ESTRADIOL\ETONOGESTREL
     Indication: POLYCYSTIC OVARIES
     Dosage: 1 RING/MONTH INSERT FOR 21 DAYS
     Route: 067
  7. NUVARING [Suspect]
     Active Substance: ETHINYL ESTRADIOL\ETONOGESTREL
     Indication: CONTRACEPTION
     Dosage: 1 RING/MONTH INSERT FOR 21 DAYS
     Route: 067

REACTIONS (8)
  - Pain [None]
  - Neck pain [None]
  - Pulmonary embolism [None]
  - Dyspnoea [None]
  - Musculoskeletal pain [None]
  - Back pain [None]
  - Pain in jaw [None]
  - Peripheral vascular disorder [None]

NARRATIVE: CASE EVENT DATE: 20150302
